FAERS Safety Report 5248646-5 (Version None)
Quarter: 2007Q1

REPORT INFORMATION
  Report Type: 
  Country: None (occurrence: None)
  Receive Date: 20070226
  Receipt Date: 20070226
  Transmission Date: 20070707
  Serious: Yes (Life-Threatening, Hospitalization, Other)
  Sender: FDA-Public Use
  Company Number: None

PATIENT
  Age: 35 Year
  Sex: Female
  Weight: 88.4514 kg

DRUGS (1)
  1. TEGRETOL [Suspect]
     Indication: AFFECTIVE DISORDER
     Dates: start: 19921110, end: 19921226

REACTIONS (7)
  - ALOPECIA [None]
  - DEHYDRATION [None]
  - DRUG HYPERSENSITIVITY [None]
  - HEPATIC FAILURE [None]
  - MULTI-ORGAN FAILURE [None]
  - RESPIRATORY FAILURE [None]
  - STEVENS-JOHNSON SYNDROME [None]
